FAERS Safety Report 13294092 (Version 1)
Quarter: 2017Q1

REPORT INFORMATION
  Report Type: Spontaneous
  Country: US (occurrence: US)
  Receive Date: 20170303
  Receipt Date: 20170303
  Transmission Date: 20170428
  Serious: No
  Sender: FDA-Public Use
  Company Number: US-BAYER-2017-042414

PATIENT
  Age: 58 Year
  Sex: Male

DRUGS (1)
  1. BETASERON [Suspect]
     Active Substance: INTERFERON BETA-1B
     Dosage: UNK
     Dates: start: 2017

REACTIONS (2)
  - Coordination abnormal [None]
  - Insomnia [None]

NARRATIVE: CASE EVENT DATE: 201702
